FAERS Safety Report 8909175 (Version 1)
Quarter: 2012Q4

REPORT INFORMATION
  Report Type: Spontaneous
  Country: FR (occurrence: None)
  Receive Date: 20121107
  Receipt Date: 20121107
  Transmission Date: 20130627
  Serious: Yes (Hospitalization)
  Sender: FDA-Public Use
  Company Number: MPS1-100811

PATIENT
  Age: 3 Year
  Sex: Male

DRUGS (3)
  1. ALDURAZYME [Suspect]
     Indication: MUCOPOLYSACCHARIDOSIS I
     Route: 042
  2. ALDURAZYME [Suspect]
     Route: 042
  3. OXYGEN [Concomitant]

REACTIONS (4)
  - Lung infection [None]
  - General physical health deterioration [None]
  - Body temperature increased [None]
  - Drug dose omission [None]
